FAERS Safety Report 15938933 (Version 2)
Quarter: 2019Q1

REPORT INFORMATION
  Report Type: Spontaneous
  Country: US (occurrence: US)
  Receive Date: 20190208
  Receipt Date: 20190320
  Transmission Date: 20190417
  Serious: No
  Sender: FDA-Public Use
  Company Number: US-PFIZER INC-2017149748

PATIENT
  Age: 27 Year
  Sex: Female

DRUGS (30)
  1. LYRICA [Suspect]
     Active Substance: PREGABALIN
     Indication: PELVIC PAIN
     Dosage: 300 MG, 2X/DAY (2 PO Q 12 HOURS)
     Route: 048
  2. RELAFEN [Concomitant]
     Active Substance: NABUMETONE
     Indication: DRUG ABUSE
  3. VITAMIN A [Concomitant]
     Active Substance: VITAMIN A
     Dosage: UNK
     Route: 048
  4. CYMBALTA [Concomitant]
     Active Substance: DULOXETINE HYDROCHLORIDE
     Dosage: 30 MG, DAILY
     Route: 048
  5. NORCO [Concomitant]
     Active Substance: ACETAMINOPHEN\HYDROCODONE BITARTRATE
     Indication: ARTHRALGIA
  6. METHOTREXATE. [Concomitant]
     Active Substance: METHOTREXATE
     Dosage: UNK (25 MG/L)
  7. ZOFRAN [Concomitant]
     Active Substance: ONDANSETRON HYDROCHLORIDE
     Indication: NAUSEA
     Dosage: 4 MG, AS NEEDED
     Route: 048
  8. BUTRANS [Concomitant]
     Active Substance: BUPRENORPHINE
     Indication: PELVIC PAIN
     Dosage: 1 DF, WEEKLY (1 PATCH ONTO THE SKIN EVERY 7 DAYS FOR 28 DAYS)
     Route: 062
  9. FOLVITE [Concomitant]
     Active Substance: FOLIC ACID
     Dosage: 2 MG, DAILY
     Route: 048
  10. NORCO [Concomitant]
     Active Substance: ACETAMINOPHEN\HYDROCODONE BITARTRATE
     Indication: PAIN
     Dosage: 5 MG, AS NEEDED [HYDROCODONE BITARTRATE 5 MG]/[PARACETAMOL 325 MG]
     Route: 048
  11. NORCO [Concomitant]
     Active Substance: ACETAMINOPHEN\HYDROCODONE BITARTRATE
     Indication: DRUG ABUSE
  12. DELTASONE [Concomitant]
     Active Substance: PREDNISONE
     Dosage: 20 MG, DAILY
     Route: 048
  13. VITAMIN D3 [Concomitant]
     Active Substance: CHOLECALCIFEROL
     Dosage: 2000 IU, DAILY
     Route: 048
  14. LYRICA [Suspect]
     Active Substance: PREGABALIN
     Indication: PERINEAL PAIN
  15. VITAMIN B1, B6 + B12 [Concomitant]
     Dosage: 1 DF, DAILY
     Route: 048
  16. LYRICA [Suspect]
     Active Substance: PREGABALIN
     Indication: RHEUMATOID ARTHRITIS
  17. BUTRANS [Concomitant]
     Active Substance: BUPRENORPHINE
     Indication: DRUG ABUSE
  18. BUTRANS [Concomitant]
     Active Substance: BUPRENORPHINE
     Indication: RHEUMATOID ARTHRITIS
  19. MOBIC [Concomitant]
     Active Substance: MELOXICAM
     Dosage: 7.5 MG, 2X/DAY
  20. NUCYNTA [Concomitant]
     Active Substance: TAPENTADOL HYDROCHLORIDE
     Indication: PELVIC PAIN
  21. PRILOSEC [Concomitant]
     Active Substance: OMEPRAZOLE MAGNESIUM
     Dosage: 40 MG, DAILY
     Route: 048
  22. NUCYNTA [Concomitant]
     Active Substance: TAPENTADOL HYDROCHLORIDE
     Indication: DRUG ABUSE
     Dosage: 50 MG, AS NEEDED (EVERY 6 HOURS AS NEEDED TO LAST 28 DAYS)
     Route: 048
  23. DULOXETINE. [Concomitant]
     Active Substance: DULOXETINE
     Dosage: 60 MG, DAILY
     Route: 048
  24. NEXPLANON [Concomitant]
     Active Substance: ETONOGESTREL
     Dosage: 68 MG, UNK
  25. RELAFEN [Concomitant]
     Active Substance: NABUMETONE
     Indication: PELVIC PAIN
  26. LYRICA [Suspect]
     Active Substance: PREGABALIN
     Indication: DRUG ABUSE
     Dosage: 150 MG, 2X/DAY (1 PO Q 12 HOURS)
     Route: 048
     Dates: start: 20161103
  27. BUSPAR [Concomitant]
     Active Substance: BUSPIRONE HYDROCHLORIDE
     Indication: ANXIETY
     Dosage: 10 MG, 3X/DAY
     Route: 048
  28. RELAFEN [Concomitant]
     Active Substance: NABUMETONE
     Indication: PAIN
     Dosage: 750 MG, 2X/DAY (EVERY 12 HOURS)
     Route: 048
  29. RELAFEN [Concomitant]
     Active Substance: NABUMETONE
     Indication: RHEUMATOID FACTOR
  30. NUCYNTA [Concomitant]
     Active Substance: TAPENTADOL HYDROCHLORIDE
     Indication: RHEUMATOID ARTHRITIS

REACTIONS (2)
  - Product use in unapproved indication [Unknown]
  - Asthenia [Unknown]

NARRATIVE: CASE EVENT DATE: 20161103
